FAERS Safety Report 4564033-7 (Version None)
Quarter: 2005Q1

REPORT INFORMATION
  Report Type: 
  Country: None (occurrence: None)
  Receive Date: 20050128
  Receipt Date: 20040518
  Transmission Date: 20050727
  Serious: No
  Sender: FDA-Public Use
  Company Number: US-BRISTOL-MYERS SQUIBB COMPANY-12590691

PATIENT
  Age: 71 Year
  Sex: Female
  Weight: 66 kg

DRUGS (7)
  1. CEFZIL [Suspect]
     Indication: LOCALISED INFECTION
     Route: 048
     Dates: start: 20040517, end: 20040517
  2. CELEBREX [Concomitant]
  3. LIPITOR [Concomitant]
  4. DETROL [Concomitant]
  5. OS-CAL [Concomitant]
  6. MULTI-VITAMIN [Concomitant]
  7. ASPIRIN [Concomitant]

REACTIONS (4)
  - ABDOMINAL PAIN UPPER [None]
  - ASTHENIA [None]
  - DIARRHOEA [None]
  - VOMITING [None]
